FAERS Safety Report 23328611 (Version 1)
Quarter: 2023Q4

REPORT INFORMATION
  Report Type: Spontaneous
  Country: US (occurrence: US)
  Receive Date: 20231221
  Receipt Date: 20231221
  Transmission Date: 20240110
  Serious: Yes (Other)
  Sender: FDA-Public Use
  Company Number: US-ABBVIE-5546627

PATIENT

DRUGS (1)
  1. VUITY [Suspect]
     Active Substance: PILOCARPINE HYDROCHLORIDE
     Indication: Product used for unknown indication
     Route: 065

REACTIONS (12)
  - Blindness [Not Recovered/Not Resolved]
  - Blindness [Not Recovered/Not Resolved]
  - Vitreous detachment [Unknown]
  - Retinal injury [Not Recovered/Not Resolved]
  - Retinal detachment [Not Recovered/Not Resolved]
  - Mobility decreased [Not Recovered/Not Resolved]
  - Pain [Unknown]
  - Unevaluable event [Not Recovered/Not Resolved]
  - Eye pain [Unknown]
  - Multiple injuries [Not Recovered/Not Resolved]
  - Quality of life decreased [Not Recovered/Not Resolved]
  - Anxiety [Unknown]
